FAERS Safety Report 9382011 (Version 1)
Quarter: 2013Q3

REPORT INFORMATION
  Report Type: Spontaneous
  Country: US (occurrence: US)
  Receive Date: 20130703
  Receipt Date: 20130703
  Transmission Date: 20140515
  Serious: Yes (Other)
  Sender: FDA-Public Use
  Company Number: PHEH2013US014070

PATIENT
  Age: 63 Year
  Sex: Female
  Weight: 84.35 kg

DRUGS (1)
  1. FEMARA [Suspect]
     Dosage: UNK UKN, UNK

REACTIONS (9)
  - Libido decreased [Unknown]
  - Arthralgia [Unknown]
  - Neuropathy peripheral [Unknown]
  - Palmar-plantar erythrodysaesthesia syndrome [Unknown]
  - Muscle spasms [Unknown]
  - Oral pain [Unknown]
  - Constipation [Unknown]
  - Hot flush [Unknown]
  - Drug ineffective [Unknown]
